FAERS Safety Report 9233636 (Version 1)
Quarter: 2013Q2

REPORT INFORMATION
  Report Type: Spontaneous
  Country: US (occurrence: US)
  Receive Date: 20130416
  Receipt Date: 20130416
  Transmission Date: 20140414
  Serious: No
  Sender: FDA-Public Use
  Company Number: US-BANPHARM-20130675

PATIENT
  Age: 70 Year
  Sex: Female
  Weight: 89.81 kg

DRUGS (5)
  1. ALEVE LIQUID GELS 220MG [Suspect]
     Indication: BACK PAIN
     Dosage: 1 DF, QD,
     Route: 048
     Dates: start: 201301, end: 20130204
  2. RADIATION THERAPY [Concomitant]
  3. BLOOD PRESSURE MEDICATION [Concomitant]
  4. ANTI DEPRESSANTS [Concomitant]
  5. PHENOBARB [Concomitant]

REACTIONS (2)
  - Abnormal behaviour [Not Recovered/Not Resolved]
  - Incorrect drug administration duration [Unknown]
